FAERS Safety Report 26167345 (Version 1)
Quarter: 2025Q4

REPORT INFORMATION
  Report Type: Spontaneous
  Country: EU (occurrence: EU)
  Receive Date: 20251217
  Receipt Date: 20251217
  Transmission Date: 20260117
  Serious: Yes (Other)
  Sender: AVERITAS
  Company Number: None

PATIENT
  Age: 52 Year
  Sex: Female
  Weight: 55.1 kg

DRUGS (1)
  1. QUTENZA [Suspect]
     Active Substance: CAPSAICIN
     Indication: Product used for unknown indication
     Dosage: UNK, ONCE
     Route: 003
     Dates: start: 20230713, end: 20230717

REACTIONS (4)
  - Blister [Recovering/Resolving]
  - Anaphylactic reaction [Recovering/Resolving]
  - Swelling of eyelid [Recovering/Resolving]
  - Dysphagia [Recovering/Resolving]

NARRATIVE: CASE EVENT DATE: 20250828
